FAERS Safety Report 16704376 (Version 4)
Quarter: 2019Q4

REPORT INFORMATION
  Report Type: Spontaneous
  Country: US (occurrence: US)
  Receive Date: 20190814
  Receipt Date: 20191115
  Transmission Date: 20200122
  Serious: Yes (Other)
  Sender: FDA-Public Use
  Company Number: PHEH2019US033138

PATIENT
  Age: 1 Year
  Sex: Female
  Weight: 10.4 kg

DRUGS (2)
  1. ZOLGENSMA [Suspect]
     Active Substance: ONASEMNOGENE ABEPARVOVEC-XIOI
     Indication: SPINAL MUSCULAR ATROPHY
     Dosage: 40.5 ML, ONCE/SINGLE
     Route: 042
     Dates: start: 20190730, end: 20190730
  2. PREDNISOLONE. [Concomitant]
     Active Substance: PREDNISOLONE
     Indication: PRODUCT USED FOR UNKNOWN INDICATION
     Dosage: 3.7 ML, UNK
     Route: 065
     Dates: start: 20190729

REACTIONS (4)
  - Pyrexia [Unknown]
  - Blood bilirubin increased [Unknown]
  - Liver function test increased [Recovering/Resolving]
  - Vomiting [Unknown]

NARRATIVE: CASE EVENT DATE: 20190805
